FAERS Safety Report 8598041-6 (Version None)
Quarter: 2012Q3

REPORT INFORMATION
  Report Type: 
  Country: None (occurrence: None)
  Receive Date: 20120816
  Receipt Date: 20120806
  Transmission Date: 20120928
  Serious: Yes (Hospitalization)
  Sender: FDA-Public Use
  Company Number: US-NOVOPROD-357458

PATIENT
  Age: 72 Year
  Sex: Female
  Weight: 58.957 kg

DRUGS (5)
  1. LEVEMIR [Suspect]
     Indication: TYPE 2 DIABETES MELLITUS
     Dosage: 20 U, QD
     Route: 058
     Dates: start: 20110101, end: 20120803
  2. GLYBURIDE [Concomitant]
     Indication: TYPE 2 DIABETES MELLITUS
     Dosage: UNK
     Dates: start: 20000101
  3. NOVOLOG [Suspect]
     Indication: TYPE 2 DIABETES MELLITUS
     Dosage: 30-35 U PER DAY
     Route: 058
     Dates: start: 20120601, end: 20120803
  4. LEVEMIR [Suspect]
     Dosage: 20 U, QD
     Route: 058
     Dates: start: 20120805
  5. NOVOLOG [Suspect]
     Dosage: 30-35 U PER DAY
     Route: 058
     Dates: start: 20120805

REACTIONS (2)
  - MYOCARDIAL INFARCTION [None]
  - MYALGIA [None]
